FAERS Safety Report 4469390-8 (Version None)
Quarter: 2004Q4

REPORT INFORMATION
  Report Type: 
  Country: None (occurrence: None)
  Receive Date: 20041008
  Receipt Date: 20040506
  Transmission Date: 20050328
  Serious: No
  Sender: FDA-Public Use
  Company Number: US-BRISTOL-MYERS SQUIBB COMPANY-12580668

PATIENT
  Age: 48 Year
  Sex: Male
  Weight: 106 kg

DRUGS (1)
  1. AVAPRO [Suspect]
     Indication: HYPERTENSION
     Route: 048

REACTIONS (3)
  - ANXIETY [None]
  - FATIGUE [None]
  - HEADACHE [None]
